FAERS Safety Report 8589825-9 (Version None)
Quarter: 2012Q3

REPORT INFORMATION
  Report Type: 
  Country: None (occurrence: None)
  Receive Date: 20120813
  Receipt Date: 19931026
  Transmission Date: 20120928
  Serious: Yes (Other)
  Sender: FDA-Public Use
  Company Number: US-ROCHE-1098720

PATIENT
  Age: 60 Year
  Sex: Male

DRUGS (3)
  1. ACTIVASE [Suspect]
     Indication: ACUTE MYOCARDIAL INFARCTION
     Route: 040
  2. LIBRIUM [Concomitant]
  3. ACTIVASE [Suspect]
     Route: 042

REACTIONS (6)
  - VENTRICULAR EXTRASYSTOLES [None]
  - SUPRAVENTRICULAR EXTRASYSTOLES [None]
  - VENTRICULAR TACHYCARDIA [None]
  - NODAL RHYTHM [None]
  - CHEST PAIN [None]
  - ACCELERATED IDIOVENTRICULAR RHYTHM [None]
